FAERS Safety Report 6855074-5 (Version None)
Quarter: 2010Q3

REPORT INFORMATION
  Report Type: 
  Country: None (occurrence: None)
  Receive Date: 20100717
  Receipt Date: 20081125
  Transmission Date: 20110219
  Serious: Yes (Other)
  Sender: FDA-Public Use
  Company Number: US-PFIZER INC-2007108543

PATIENT
  Age: 36 Year
  Sex: Female
  Weight: 77.098 kg

DRUGS (1)
  1. CHANTIX [Suspect]
     Indication: SMOKING CESSATION THERAPY
     Dosage: 0.5 MG QD X 3 DAYS, THEN BID
     Route: 048
     Dates: start: 20070621, end: 20070624

REACTIONS (2)
  - DISORIENTATION [None]
  - SENSORY LOSS [None]
